FAERS Safety Report 16080042 (Version 5)
Quarter: 2019Q2

REPORT INFORMATION
  Report Type: Report from Study
  Country: JP (occurrence: JP)
  Receive Date: 20190315
  Receipt Date: 20190426
  Transmission Date: 20190711
  Serious: Yes (Hospitalization, Other)
  Sender: FDA-Public Use
  Company Number: JP-BRISTOL-MYERS SQUIBB COMPANY-BMS-2018-073526

PATIENT
  Age: 72 Year
  Sex: Female
  Weight: 33.1 kg

DRUGS (15)
  1. GASMOTIN [Concomitant]
     Active Substance: MOSAPRIDE CITRATE
     Indication: DYSPEPSIA
     Dosage: 1 UNIT, TID
     Route: 048
  2. DIQUAS [Concomitant]
     Active Substance: DIQUAFOSOL TETRASODIUM
     Indication: DRY EYE
     Dosage: 1 UNIT
     Route: 047
     Dates: start: 20180522
  3. SENNOSIDE                          /00571901/ [Concomitant]
     Active Substance: SENNOSIDES A AND B
     Indication: CONSTIPATION
     Dosage: 1 UNIT
     Route: 048
     Dates: start: 20180522
  4. MOHRUS PAP XR [Concomitant]
     Active Substance: KETOPROFEN
     Indication: PERIARTHRITIS
     Dosage: 1 UNIT, QD
     Route: 062
     Dates: start: 20180731
  5. CAPECITABINE. [Concomitant]
     Active Substance: CAPECITABINE
     Indication: PRODUCT USED FOR UNKNOWN INDICATION
     Dosage: 2400 MILLIGRAM, QD
     Route: 065
     Dates: start: 20180320, end: 20180501
  6. MAGNESIUM OXIDE. [Concomitant]
     Active Substance: MAGNESIUM OXIDE
     Indication: CONSTIPATION
     Dosage: 1 DOSAGE FORM
     Route: 048
     Dates: start: 20180410
  7. MEIJI TROCHES [Concomitant]
     Indication: PHARYNGITIS
     Dosage: UNK DOSAGE FORM
     Route: 048
     Dates: start: 20180731, end: 20180803
  8. SUMILU STICK [Concomitant]
     Indication: BACK PAIN
     Dosage: 1 DOSAGE FORM
     Route: 062
     Dates: start: 20180904
  9. OXALIPLATIN. [Concomitant]
     Active Substance: OXALIPLATIN
     Indication: PRODUCT USED FOR UNKNOWN INDICATION
     Dosage: 130 MILLIGRAM/SQ. METER
     Route: 065
     Dates: start: 20180320, end: 20180320
  10. HIRUDOID [Concomitant]
     Active Substance: GLYCOSAMINOGLYCANS
     Indication: PRURITUS
     Dosage: 1 DOSAGE FORM
     Route: 062
     Dates: start: 20181127
  11. NIVOLUMAB [Suspect]
     Active Substance: NIVOLUMAB
     Indication: GASTRIC CANCER
     Dosage: 360 MILLIGRAM, Q3WK
     Route: 042
     Dates: start: 20180320, end: 20180710
  12. LEVOTHYROXINE SODIUM. [Concomitant]
     Active Substance: LEVOTHYROXINE SODIUM
     Indication: HYPOTHYROIDISM
     Dosage: 50 MICROGRAM
     Route: 048
     Dates: start: 20180711
  13. LOXONIN [Concomitant]
     Active Substance: LOXOPROFEN SODIUM
     Indication: PERIARTHRITIS
     Dosage: 1 UNIT, QD
     Route: 062
     Dates: start: 20180731
  14. AZUNOL GARGLE LIQUID [Concomitant]
     Indication: PHARYNGITIS
     Dosage: 1 UNIT
     Route: 061
     Dates: start: 20180720, end: 20180803
  15. LYRICA [Concomitant]
     Active Substance: PREGABALIN
     Indication: NEURALGIA
     Dosage: 2 DOSAGE FORM, Q12H
     Route: 048
     Dates: start: 20181211

REACTIONS (2)
  - Interstitial lung disease [Recovering/Resolving]
  - Biliary tract disorder [Recovering/Resolving]

NARRATIVE: CASE EVENT DATE: 20180725
